FAERS Safety Report 13494543 (Version 1)
Quarter: 2017Q2

REPORT INFORMATION
  Report Type: Spontaneous
  Country: US (occurrence: US)
  Receive Date: 20170428
  Receipt Date: 20170428
  Transmission Date: 20170830
  Serious: Yes (Other)
  Sender: FDA-Public Use
  Company Number: US-STRIDES ARCOLAB LIMITED-2017SP006160

PATIENT

DRUGS (9)
  1. METFORMIN [Concomitant]
     Active Substance: METFORMIN HYDROCHLORIDE
     Indication: BLOOD GLUCOSE INCREASED
     Dosage: UNK, UNKNOWN
     Route: 048
  2. GLITAZONE [Concomitant]
     Indication: BLOOD GLUCOSE INCREASED
     Dosage: UNK, UNKNOWN
     Route: 048
  3. SIROLIMUS. [Suspect]
     Active Substance: SIROLIMUS
     Indication: PANCREAS ISLET CELL TRANSPLANT
     Dosage: UNK, UNKNOWN
     Route: 065
  4. TACROLIMUS. [Suspect]
     Active Substance: TACROLIMUS
     Indication: PANCREAS ISLET CELL TRANSPLANT
     Dosage: UNK UNK, UNKNOWN
     Route: 065
  5. INSULIN [Concomitant]
     Active Substance: INSULIN NOS
     Indication: GLYCOSYLATED HAEMOGLOBIN INCREASED
     Dosage: 0.33 UNITS/KG/DAY, UNK PRE TRANSPLANT
     Route: 065
  6. ATORVASTATIN [Concomitant]
     Active Substance: ATORVASTATIN
     Indication: LOW DENSITY LIPOPROTEIN INCREASED
     Dosage: 40 MG, DAILY
     Route: 065
     Dates: start: 2006
  7. INSULIN [Concomitant]
     Active Substance: INSULIN NOS
     Dosage: 0.12 UNITS/KG/DAY, UNK
  8. SIMVASTATIN. [Concomitant]
     Active Substance: SIMVASTATIN
     Indication: PRODUCT USED FOR UNKNOWN INDICATION
     Dosage: 20 MG, DAILY
     Route: 065
     Dates: end: 2006
  9. INSULIN [Concomitant]
     Active Substance: INSULIN NOS
     Dosage: 0.06 UNITS/KG/DAY, UNKNOWN
     Route: 065

REACTIONS (3)
  - Off label use [Unknown]
  - Mouth ulceration [Unknown]
  - Renal impairment [Recovered/Resolved]
